FAERS Safety Report 10786148 (Version 1)
Quarter: 2015Q1

REPORT INFORMATION
  Report Type: Spontaneous
  Country: US (occurrence: US)
  Receive Date: 20150211
  Receipt Date: 20150211
  Transmission Date: 20150721
  Serious: Yes (Other)
  Sender: FDA-Public Use
  Company Number: US-ASTRAZENECA-2015SE12692

PATIENT
  Age: 21124 Day
  Sex: Female
  Weight: 104.3 kg

DRUGS (3)
  1. SEROQUEL [Suspect]
     Active Substance: QUETIAPINE FUMARATE
     Indication: BIPOLAR DISORDER
     Route: 048
     Dates: start: 201206
  2. RISPERDAL [Concomitant]
     Active Substance: RISPERIDONE
  3. LASIX [Concomitant]
     Active Substance: FUROSEMIDE

REACTIONS (25)
  - Blindness [Unknown]
  - Intervertebral disc degeneration [Unknown]
  - Spinal column stenosis [Unknown]
  - Hallucination, visual [Unknown]
  - Injury [Unknown]
  - Blister [Unknown]
  - Mood swings [Unknown]
  - Back injury [Unknown]
  - Weight increased [Unknown]
  - Gait disturbance [Unknown]
  - Appetite disorder [Unknown]
  - Asthenia [Unknown]
  - Muscle spasms [Not Recovered/Not Resolved]
  - Nightmare [Unknown]
  - Malaise [Unknown]
  - Peripheral swelling [Unknown]
  - Depressed level of consciousness [Recovering/Resolving]
  - Cognitive disorder [Unknown]
  - Anxiety [Unknown]
  - Dyspnoea [Unknown]
  - Therapy change [Unknown]
  - Skin exfoliation [Unknown]
  - Pain [Unknown]
  - Drug hypersensitivity [Unknown]
  - Dyskinesia [Unknown]

NARRATIVE: CASE EVENT DATE: 201206
